FAERS Safety Report 17204995 (Version 2)
Quarter: 2021Q1

REPORT INFORMATION
  Report Type: Spontaneous
  Country: US (occurrence: US)
  Receive Date: 20191227
  Receipt Date: 20210105
  Transmission Date: 20210419
  Serious: No
  Sender: FDA-Public Use
  Company Number: US-STRIDES ARCOLAB LIMITED-2019SP010679

PATIENT
  Sex: Female

DRUGS (2)
  1. CARISOPRODOL TABLET [Suspect]
     Active Substance: CARISOPRODOL
     Indication: MUSCLE SPASMS
     Dosage: 350 MILLIGRAM, PRN (TEVA?S CARISOPRODOL)
     Route: 065
     Dates: start: 1994
  2. CARISOPRODOL TABLET [Suspect]
     Active Substance: CARISOPRODOL
     Dosage: 250 MILLIGRAM, SINGLE (VENSUN PHARMA)
     Route: 048
     Dates: start: 20191024, end: 20191024

REACTIONS (8)
  - Abdominal distension [Not Recovered/Not Resolved]
  - Drug ineffective [Unknown]
  - Eructation [Unknown]
  - Malaise [Unknown]
  - Abdominal pain upper [Not Recovered/Not Resolved]
  - Nausea [Unknown]
  - Gastritis [Unknown]
  - Abdominal pain [Unknown]

NARRATIVE: CASE EVENT DATE: 20191024
